FAERS Safety Report 7058589-2 (Version None)
Quarter: 2010Q4

REPORT INFORMATION
  Report Type: 
  Country: None (occurrence: None)
  Receive Date: 20101022
  Receipt Date: 20101019
  Transmission Date: 20110411
  Serious: Yes (Other)
  Sender: FDA-Public Use
  Company Number: A0887605A

PATIENT
  Age: 65 Year
  Sex: Male

DRUGS (16)
  1. ADVAIR DISKUS 100/50 [Suspect]
     Indication: ASTHMA
     Route: 055
  2. ASMANEX TWISTHALER [Concomitant]
  3. EDECRIN [Concomitant]
  4. AMIODARONE HCL [Concomitant]
  5. AVAPRO [Concomitant]
  6. PREDNISONE [Concomitant]
  7. ALLOPURINOL [Concomitant]
  8. LOMUDAL [Concomitant]
  9. FLOMAX [Concomitant]
  10. PLAVIX [Concomitant]
  11. ASPIRIN [Concomitant]
  12. ACIPHEX [Concomitant]
  13. LIPITOR [Concomitant]
  14. ATENOLOL [Concomitant]
  15. XANAX [Concomitant]
  16. UNKNOWN MEDICATION [Concomitant]

REACTIONS (1)
  - ASTHMA [None]
